FAERS Safety Report 16347223 (Version 3)
Quarter: 2020Q4

REPORT INFORMATION
  Report Type: Other
  Country: US (occurrence: US)
  Receive Date: 20190523
  Receipt Date: 20201230
  Transmission Date: 20210113
  Serious: Yes (Other)
  Sender: FDA-Public Use
  Company Number: US-ROCHE-2319314

PATIENT

DRUGS (7)
  1. TRASTUZUMAB. [Suspect]
     Active Substance: TRASTUZUMAB
     Indication: HER2 POSITIVE BREAST CANCER
     Dosage: LOADING DOSE
     Route: 042
  2. PERTUZUMAB. [Suspect]
     Active Substance: PERTUZUMAB
     Dosage: Q 21 DAYS
     Route: 042
  3. TRASTUZUMAB. [Suspect]
     Active Substance: TRASTUZUMAB
     Dosage: Q 21 DAYS
     Route: 042
  4. INTERFERON GAMMA NOS [Suspect]
     Active Substance: INTERFERON GAMMA
     Indication: HER2 POSITIVE BREAST CANCER
     Dosage: ON DAY 1 OF THERAPY FOR 12 WEEKS
     Route: 058
  5. PERTUZUMAB. [Suspect]
     Active Substance: PERTUZUMAB
     Indication: HER2 POSITIVE BREAST CANCER
     Dosage: LOADING DOSE
     Route: 042
  6. PACLITAXEL. [Suspect]
     Active Substance: PACLITAXEL
     Indication: HER2 POSITIVE BREAST CANCER
     Route: 042
  7. INTERFERON GAMMA NOS [Suspect]
     Active Substance: INTERFERON GAMMA
     Route: 058

REACTIONS (6)
  - Nausea [Unknown]
  - Diarrhoea [Unknown]
  - Pneumonitis [Unknown]
  - Pyrexia [Unknown]
  - Cardiac failure [Unknown]
  - Haematochezia [Unknown]
